FAERS Safety Report 8898633 (Version 1)
Quarter: 2012Q4

REPORT INFORMATION
  Report Type: 
  Country: US (occurrence: US)
  Receive Date: 20121109
  Receipt Date: 20121109
  Transmission Date: 20130627
  Serious: Yes (Hospitalization, Other)
  Sender: FDA-Public Use
  Company Number: US-PFIZER INC-2012280142

PATIENT
  Sex: Male
  Weight: 136 kg

DRUGS (5)
  1. LIPITOR [Suspect]
     Indication: HIGH CHOLESTEROL
     Dosage: UNK
     Route: 048
     Dates: start: 1997
  2. LIPITOR [Suspect]
     Dosage: 30 mg, UNK
  3. NORVASC [Concomitant]
     Indication: BLOOD PRESSURE HIGH
     Dosage: 5 mg, daily
  4. ATENOLOL [Concomitant]
     Indication: BLOOD PRESSURE HIGH
     Dosage: 25 mg, daily
  5. DOXAZOSIN MESILATE [Concomitant]
     Indication: BLOOD PRESSURE HIGH
     Dosage: 8 mg, daily

REACTIONS (2)
  - Cardiac failure [Unknown]
  - Non-Hodgkin^s lymphoma [Recovered/Resolved]
